FAERS Safety Report 14242724 (Version 1)
Quarter: 2017Q4

REPORT INFORMATION
  Report Type: Spontaneous
  Country: PE (occurrence: PE)
  Receive Date: 20171201
  Receipt Date: 20171201
  Transmission Date: 20180321
  Serious: Yes (Death, Other)
  Sender: FDA-Public Use
  Company Number: PE-APOTEX-2017AP021951

PATIENT
  Age: 86 Year
  Sex: Female

DRUGS (1)
  1. SEROXAT FILM-COATED TABLET [Suspect]
     Active Substance: PAROXETINE HYDROCHLORIDE
     Indication: PRODUCT USED FOR UNKNOWN INDICATION
     Dosage: 20 MG,
     Route: 048

REACTIONS (3)
  - Aortic occlusion [Fatal]
  - Neurological symptom [Unknown]
  - Cardiac disorder [Fatal]
